FAERS Safety Report 25063732 (Version 1)
Quarter: 2025Q1

REPORT INFORMATION
  Report Type: Spontaneous
  Country: US (occurrence: None)
  Receive Date: 20250310
  Receipt Date: 20250310
  Transmission Date: 20250409
  Serious: Yes (Hospitalization)
  Sender: FDA-CTU
  Company Number: None

PATIENT
  Age: 78 Year
  Sex: Male
  Weight: 77 kg

DRUGS (2)
  1. CIPROFLOXACIN HYDROCHLORIDE [Suspect]
     Active Substance: CIPROFLOXACIN HYDROCHLORIDE
     Indication: Urinary tract infection
     Dosage: FREQUENCY : TWICE A DAY;?
     Route: 048
     Dates: start: 20240904, end: 20240908
  2. METHOTREXATE [Suspect]
     Active Substance: METHOTREXATE

REACTIONS (6)
  - Acute kidney injury [None]
  - Mental status changes [None]
  - Fall [None]
  - Pancytopenia [None]
  - Haematological infection [None]
  - Pyrexia [None]

NARRATIVE: CASE EVENT DATE: 20240926
